FAERS Safety Report 5660167-4 (Version None)
Quarter: 2008Q1

REPORT INFORMATION
  Report Type: 
  Country: None (occurrence: None)
  Receive Date: 20080310
  Receipt Date: 20080310
  Transmission Date: 20080703
  Serious: Yes (Other)
  Sender: FDA-Public Use
  Company Number: None

PATIENT
  Age: 41 Year
  Sex: Female
  Weight: 63.5036 kg

DRUGS (1)
  1. NORATATE [Suspect]
     Dosage: 1 APPLICATOR A NIGHT  X 3 NIGHTS
     Dates: start: 20080122, end: 20080125

REACTIONS (1)
  - VAGINAL ODOUR [None]
